FAERS Safety Report 20734696 (Version 1)
Quarter: 2022Q2

REPORT INFORMATION
  Report Type: Spontaneous
  Country: US (occurrence: US)
  Receive Date: 20220421
  Receipt Date: 20220421
  Transmission Date: 20220721
  Serious: No
  Sender: FDA-Public Use
  Company Number: US-drreddys-SPO/USA/22/0149080

PATIENT
  Age: 25 Year

DRUGS (2)
  1. ZENATANE [Suspect]
     Active Substance: ISOTRETINOIN
     Indication: Product used for unknown indication
     Dosage: RMA ISSUE DATE: 16 MARCH 2022 11:41:47 AM AND 16 FEBRUARY 2022  06:14:27 PM
  2. ZENATANE [Suspect]
     Active Substance: ISOTRETINOIN
     Dosage: RMA ISSUE DATE:  11 JANUARY 2022 02:58:51 PM AND 9 DECEMBER 2021 04:49:58 PM

REACTIONS (3)
  - Adverse drug reaction [Unknown]
  - Drug ineffective [Unknown]
  - Product quality issue [Unknown]
